FAERS Safety Report 25406298 (Version 1)
Quarter: 2025Q2

REPORT INFORMATION
  Report Type: Spontaneous
  Country: US (occurrence: US)
  Receive Date: 20250606
  Receipt Date: 20250606
  Transmission Date: 20250717
  Serious: Yes (Death, Other)
  Sender: ALEXION PHARMACEUTICALS
  Company Number: US-ASTRAZENECA-202506GLO000797US

PATIENT
  Age: 54 Year

DRUGS (8)
  1. DURVALUMAB [Suspect]
     Active Substance: DURVALUMAB
     Indication: Cholangiocarcinoma
     Route: 065
  2. DURVALUMAB [Suspect]
     Active Substance: DURVALUMAB
     Indication: Pancreaticobiliary carcinoma
  3. GEMCITABINE [Concomitant]
     Active Substance: GEMCITABINE
     Indication: Cholangiocarcinoma
  4. GEMCITABINE [Concomitant]
     Active Substance: GEMCITABINE
     Indication: Pancreaticobiliary carcinoma
  5. CISPLATIN [Concomitant]
     Active Substance: CISPLATIN
     Indication: Cholangiocarcinoma
  6. CISPLATIN [Concomitant]
     Active Substance: CISPLATIN
     Indication: Pancreaticobiliary carcinoma
  7. TRASTUZUMAB [Concomitant]
     Active Substance: TRASTUZUMAB
  8. PERTUZUMAB [Concomitant]
     Active Substance: PERTUZUMAB

REACTIONS (7)
  - Shock [Fatal]
  - Malignant neoplasm progression [Unknown]
  - Metastases to thorax [Unknown]
  - Metastases to central nervous system [Unknown]
  - Pulmonary embolism [Unknown]
  - Renal vein thrombosis [Unknown]
  - Jaundice [Unknown]
